FAERS Safety Report 5389857-8 (Version None)
Quarter: 2007Q3

REPORT INFORMATION
  Report Type: 
  Country: None (occurrence: None)
  Receive Date: 20070713
  Receipt Date: 20070627
  Transmission Date: 20080115
  Serious: Yes (Other)
  Sender: FDA-Public Use
  Company Number: DSA_30172_2007

PATIENT
  Age: 34 Year
  Sex: Female

DRUGS (6)
  1. TEMESTA (TEMESTA) 3.5 MG (NOT SPECIFIED) [Suspect]
     Indication: ANXIETY
     Dosage: (3.5 MG QD ORAL), (1 DF QD)
     Route: 048
     Dates: start: 20070606, end: 20070627
  2. AXOTIDE [Concomitant]
  3. TOPAMAX [Concomitant]
  4. CETIRIZINE HCL [Concomitant]
  5. FLUOXETINE [Concomitant]
  6. SEREVENT [Concomitant]

REACTIONS (1)
  - ASTHMATIC CRISIS [None]
